FAERS Safety Report 4333990-6 (Version None)
Quarter: 2004Q2

REPORT INFORMATION
  Report Type: 
  Country: None (occurrence: None)
  Receive Date: 20040402
  Receipt Date: 20040324
  Transmission Date: 20050107
  Serious: Yes (Life-Threatening, Other)
  Sender: FDA-Public Use
  Company Number: JP-SHR-03-019168

PATIENT
  Age: 68 Year
  Sex: Female

DRUGS (7)
  1. PROSCOPE 3700(IOPROMIDE)PROSCOPE 3700(IOPROMIDE) N/A [Suspect]
     Indication: ANGIOGRAM
     Dosage: 150 ML, 1  DOSE, INTRA-ARTERIAL
     Route: 013
     Dates: start: 20031120, end: 20031120
  2. ITOROL [Concomitant]
  3. ASPIRIN [Concomitant]
  4. PANALDIEN (TICLOPIDINE HYDROCHLORIDE) [Concomitant]
  5. XYLOCAINE [Concomitant]
  6. NITOROL [Concomitant]
  7. FOSMICIN S (FOSFOMYCIN SODIUM) [Concomitant]

REACTIONS (4)
  - ANAPHYLACTIC SHOCK [None]
  - BLOOD PRESSURE DECREASED [None]
  - FACE OEDEMA [None]
  - URTICARIA PAPULAR [None]
